FAERS Safety Report 6983940-9 (Version None)
Quarter: 2010Q3

REPORT INFORMATION
  Report Type: 
  Country: None (occurrence: None)
  Receive Date: 20100914
  Receipt Date: 20090507
  Transmission Date: 20110219
  Serious: No
  Sender: FDA-Public Use
  Company Number: US-WYE-H08867809

PATIENT
  Sex: Male
  Weight: 90.8 kg

DRUGS (6)
  1. MYLOTARG [Suspect]
     Indication: ACUTE MYELOID LEUKAEMIA
     Dosage: 5ML OVER 2 HOURS ON DAY 8 OF A 28 DAY CYCLE FOR A TOTAL OF 5 CYCLES
     Route: 042
     Dates: start: 20081208, end: 20090425
  2. LEVAQUIN [Concomitant]
     Indication: INFECTION PROPHYLAXIS
     Dosage: ONGING
     Route: 048
  3. METFORMIN HCL [Concomitant]
     Indication: DIABETES MELLITUS
     Route: 048
     Dates: start: 20090330
  4. ANTIEMETICS AND ANTINAUSEANTS [Concomitant]
     Indication: PROPHYLAXIS OF NAUSEA AND VOMITING
     Dosage: 24 MG PRIOR TO EACH CHEMO
     Route: 042
     Dates: start: 20081208
  5. ANTIEMETICS AND ANTINAUSEANTS [Concomitant]
     Dosage: 8 MG Q8H PRN
     Route: 048
     Dates: start: 20081208
  6. AZACITIDINE [Concomitant]
     Indication: CHEMOTHERAPY
     Dosage: 150 MG Q DAY X 5 DAYS EVERY 4 WEEKS
     Route: 058
     Dates: start: 20081208

REACTIONS (4)
  - ABDOMINAL PAIN [None]
  - NAUSEA [None]
  - PAIN [None]
  - PAINFUL RESPIRATION [None]
